FAERS Safety Report 4622353-1 (Version None)
Quarter: 2005Q1

REPORT INFORMATION
  Report Type: 
  Country: None (occurrence: None)
  Receive Date: 20050330
  Receipt Date: 20050324
  Transmission Date: 20050727
  Serious: Yes (Hospitalization)
  Sender: FDA-Public Use
  Company Number: US-BRISTOL-MYERS SQUIBB COMPANY-12911012

PATIENT

DRUGS (1)
  1. TEQUIN [Suspect]
     Route: 048

REACTIONS (1)
  - HYPOGLYCAEMIA [None]
